FAERS Safety Report 20415788 (Version 1)
Quarter: 2022Q1

REPORT INFORMATION
  Report Type: Spontaneous
  Country: US (occurrence: None)
  Receive Date: 20220201
  Receipt Date: 20220201
  Transmission Date: 20220424
  Serious: Yes (Other)
  Sender: FDA-Public Use
  Company Number: None

PATIENT
  Age: 66 Year
  Sex: Male

DRUGS (1)
  1. EVEROLIMUS [Suspect]
     Active Substance: EVEROLIMUS
     Indication: Renal cancer
     Dosage: FREQUENCY : DAILY;?
     Route: 048
     Dates: start: 202108

REACTIONS (6)
  - Therapy interrupted [None]
  - Economic problem [None]
  - Myalgia [None]
  - Nausea [None]
  - Weight decreased [None]
  - Compression fracture [None]

NARRATIVE: CASE EVENT DATE: 20210907
